FAERS Safety Report 5118298-3 (Version None)
Quarter: 2006Q4

REPORT INFORMATION
  Report Type: 
  Country: None (occurrence: None)
  Receive Date: 20061002
  Receipt Date: 20060828
  Transmission Date: 20070319
  Serious: Yes (Other)
  Sender: FDA-Public Use
  Company Number: US-BRISTOL-MYERS SQUIBB COMPANY-13489927

PATIENT
  Age: 62 Year
  Sex: Male
  Weight: 81 kg

DRUGS (12)
  1. ORENCIA [Suspect]
     Indication: RHEUMATOID ARTHRITIS
     Route: 042
     Dates: start: 20060825, end: 20060825
  2. ALLOPURINOL [Concomitant]
  3. HYDROXYCHLOROQUINE SULFATE [Concomitant]
  4. ARAVA [Concomitant]
  5. PREDNISONE [Concomitant]
  6. POTASSIUM [Concomitant]
  7. VITAMIN B6 [Concomitant]
  8. INH [Concomitant]
  9. HYDROCHLOROTHIAZDE TAB [Concomitant]
  10. MULTIVITAMIN [Concomitant]
  11. ASCORBIC ACID [Concomitant]
  12. FOLIC ACID [Concomitant]

REACTIONS (4)
  - COUGH [None]
  - DYSPNOEA [None]
  - PRURITUS [None]
  - URTICARIA [None]
